FAERS Safety Report 18337391 (Version 2)
Quarter: 2021Q2

REPORT INFORMATION
  Report Type: Spontaneous
  Country: US (occurrence: US)
  Receive Date: 20201002
  Receipt Date: 20210607
  Transmission Date: 20210717
  Serious: Yes (Death, Other)
  Sender: FDA-Public Use
  Company Number: US-ASTRAZENECA-2020SF23493

PATIENT
  Age: 28298 Day
  Sex: Female
  Weight: 74.8 kg

DRUGS (44)
  1. NEXIUM [Suspect]
     Active Substance: ESOMEPRAZOLE MAGNESIUM
     Indication: GASTROOESOPHAGEAL REFLUX DISEASE
     Route: 048
     Dates: start: 2001, end: 2017
  2. PROTONIX [Suspect]
     Active Substance: PANTOPRAZOLE SODIUM
     Indication: GASTROOESOPHAGEAL REFLUX DISEASE
     Route: 065
     Dates: start: 2001, end: 2017
  3. FLUTICASONE. [Concomitant]
     Active Substance: FLUTICASONE
  4. LIDOCAINE. [Concomitant]
     Active Substance: LIDOCAINE
  5. PROTONIX [Suspect]
     Active Substance: PANTOPRAZOLE SODIUM
     Indication: GASTROOESOPHAGEAL REFLUX DISEASE
     Dosage: GENERIC
     Route: 065
     Dates: start: 2008, end: 2011
  6. AZITHROMYCIN ANHYDROUS. [Concomitant]
     Active Substance: AZITHROMYCIN ANHYDROUS
  7. LORATIDINE [Concomitant]
     Active Substance: LORATADINE
  8. NIFEDICAL XL [Concomitant]
     Active Substance: NIFEDIPINE
  9. NOVOLOG [Concomitant]
     Active Substance: INSULIN ASPART
  10. BENZONATATE. [Concomitant]
     Active Substance: BENZONATATE
  11. LISINOPRIL. [Concomitant]
     Active Substance: LISINOPRIL
  12. OMEPRAZOLE. [Suspect]
     Active Substance: OMEPRAZOLE
     Indication: GASTROOESOPHAGEAL REFLUX DISEASE
     Dosage: GENERIC
     Route: 065
     Dates: start: 2009, end: 2014
  13. OXYBUTYNIN. [Concomitant]
     Active Substance: OXYBUTYNIN CHLORIDE
  14. HUMALOG [Concomitant]
     Active Substance: INSULIN LISPRO
  15. DIPHENOXYLATE [Concomitant]
     Active Substance: DIPHENOXYLATE
  16. VENTOLIN HFA [Concomitant]
     Active Substance: ALBUTEROL SULFATE
  17. SIMETHICONE (DIMETHICONE) [Concomitant]
     Active Substance: DIMETHICONE
  18. PROAIR HFA [Concomitant]
     Active Substance: ALBUTEROL SULFATE
  19. LEVEMIR [Concomitant]
     Active Substance: INSULIN DETEMIR
  20. MORPHINE [Concomitant]
     Active Substance: MORPHINE
  21. NEXIUM [Suspect]
     Active Substance: ESOMEPRAZOLE MAGNESIUM
     Indication: GASTROOESOPHAGEAL REFLUX DISEASE
     Route: 048
     Dates: start: 2006, end: 2010
  22. CLOPIDOGREL [Concomitant]
     Active Substance: CLOPIDOGREL BISULFATE
  23. CLONIDINE. [Concomitant]
     Active Substance: CLONIDINE
  24. HYDRALAZINE [Concomitant]
     Active Substance: HYDRALAZINE HYDROCHLORIDE
  25. PREVACID [Suspect]
     Active Substance: LANSOPRAZOLE
     Indication: GASTROOESOPHAGEAL REFLUX DISEASE
     Dosage: GENERIC
     Route: 065
     Dates: start: 2009
  26. PROTONIX [Suspect]
     Active Substance: PANTOPRAZOLE SODIUM
     Indication: GASTROOESOPHAGEAL REFLUX DISEASE
     Route: 065
     Dates: start: 2007, end: 2008
  27. IRON [Concomitant]
     Active Substance: IRON
  28. ATORVASTATIN [Concomitant]
     Active Substance: ATORVASTATIN
  29. BUTALBITAL [Concomitant]
     Active Substance: BUTALBITAL
  30. PROMETHAZINE [Concomitant]
     Active Substance: PROMETHAZINE HYDROCHLORIDE
  31. OXYCODONE [Concomitant]
     Active Substance: OXYCODONE
  32. PEG [Concomitant]
     Active Substance: POLYETHYLENE GLYCOLS
  33. FUROSEMIDE. [Concomitant]
     Active Substance: FUROSEMIDE
  34. TRIAMCINOLONE [Concomitant]
     Active Substance: TRIAMCINOLONE
  35. GUAIFENESIN. [Concomitant]
     Active Substance: GUAIFENESIN
  36. SIMVASTATIN. [Concomitant]
     Active Substance: SIMVASTATIN
  37. SEROQUEL [Concomitant]
     Active Substance: QUETIAPINE FUMARATE
  38. SINGULAIR [Concomitant]
     Active Substance: MONTELUKAST SODIUM
  39. VITAMIN D [Concomitant]
     Active Substance: VITAMIN D NOS
     Indication: BONE DISORDER
  40. HYDROCODONE [Concomitant]
     Active Substance: HYDROCODONE
  41. TOBRAMYCIN. [Concomitant]
     Active Substance: TOBRAMYCIN
  42. GABAPENTIN. [Concomitant]
     Active Substance: GABAPENTIN
  43. POTASSIUM CHLORIDE. [Concomitant]
     Active Substance: POTASSIUM CHLORIDE
  44. PROPOXYPHENE. [Concomitant]
     Active Substance: PROPOXYPHENE

REACTIONS (9)
  - Cardio-respiratory arrest [Fatal]
  - Renal failure [Unknown]
  - Acute kidney injury [Not Recovered/Not Resolved]
  - End stage renal disease [Unknown]
  - Chronic kidney disease-mineral and bone disorder [Unknown]
  - Sepsis [Fatal]
  - Chronic kidney disease [Not Recovered/Not Resolved]
  - Nephrogenic anaemia [Unknown]
  - Skin ulcer [Fatal]

NARRATIVE: CASE EVENT DATE: 20160607
